FAERS Safety Report 5195188-1 (Version None)
Quarter: 2006Q4

REPORT INFORMATION
  Report Type: 
  Country: None (occurrence: None)
  Receive Date: 20061229
  Receipt Date: 20061003
  Transmission Date: 20070319
  Serious: Yes (Hospitalization)
  Sender: FDA-Public Use
  Company Number: GB-PFIZER INC-2006120609

PATIENT
  Sex: Female

DRUGS (4)
  1. SU-011,248 [Suspect]
     Indication: RENAL CELL CARCINOMA STAGE UNSPECIFIED
     Route: 048
  2. ZOLPIDEM TARTRATE [Concomitant]
     Dosage: DAILY DOSE:10MG
     Route: 048
  3. IBANDRONIC ACID [Concomitant]
     Dosage: DAILY DOSE:50MG
     Route: 048
  4. ACETAMINOPHEN W/ CODEINE [Concomitant]
     Dosage: TEXT:30/500
     Route: 048

REACTIONS (5)
  - ABDOMINAL DISTENSION [None]
  - ASCITES [None]
  - EJECTION FRACTION DECREASED [None]
  - OEDEMA PERIPHERAL [None]
  - PLEURAL EFFUSION [None]
